FAERS Safety Report 16012922 (Version 3)
Quarter: 2019Q2

REPORT INFORMATION
  Report Type: Spontaneous
  Country: AU (occurrence: AU)
  Receive Date: 20190227
  Receipt Date: 20190417
  Transmission Date: 20190711
  Serious: Yes (Death, Hospitalization, Other)
  Sender: FDA-Public Use
  Company Number: AU-ACTELION-A-CH2019-186614

PATIENT
  Age: 65 Year
  Sex: Female
  Weight: 63.2 kg

DRUGS (10)
  1. THYROXINE [Concomitant]
     Active Substance: LEVOTHYROXINE
     Dosage: 50 MG, QD
  2. METOPROLOL. [Concomitant]
     Active Substance: METOPROLOL
     Dosage: 50 MG, BID
  3. SALBUTAMOL [Concomitant]
     Active Substance: ALBUTEROL
  4. OPSUMIT [Suspect]
     Active Substance: MACITENTAN
     Indication: PULMONARY ARTERIAL HYPERTENSION
     Dosage: 10 MG, QD
     Route: 048
     Dates: start: 20190122
  5. FUROSEMIDE. [Concomitant]
     Active Substance: FUROSEMIDE
     Dosage: 40 MG, BID
  6. SILDENAFIL. [Suspect]
     Active Substance: SILDENAFIL
     Indication: PULMONARY ARTERIAL HYPERTENSION
     Dosage: 20 MG, TID
     Route: 048
     Dates: start: 20190122
  7. WARFARIN [Concomitant]
     Active Substance: WARFARIN
     Dosage: 6 MG, QD
     Route: 048
  8. FUROSEMIDE. [Concomitant]
     Active Substance: FUROSEMIDE
     Dosage: 20 MG, BID
  9. SERETIDE [Concomitant]
     Active Substance: FLUTICASONE PROPIONATE\SALMETEROL XINAFOATE
  10. WARFARIN [Concomitant]
     Active Substance: WARFARIN
     Dosage: 5 MG, QD
     Route: 048

REACTIONS (17)
  - Septic shock [Fatal]
  - Cardiac failure congestive [Fatal]
  - Cough [Fatal]
  - Atrial flutter [Fatal]
  - Hypoxia [Fatal]
  - Acute kidney injury [Fatal]
  - Pericardial effusion [Fatal]
  - Pleural effusion [Fatal]
  - Pulmonary arterial hypertension [Unknown]
  - Fluid overload [Fatal]
  - Lethargy [Fatal]
  - Sepsis [Unknown]
  - Disease progression [Fatal]
  - Oedema peripheral [Fatal]
  - Hypotension [Fatal]
  - Dyspnoea [Fatal]
  - Condition aggravated [Unknown]

NARRATIVE: CASE EVENT DATE: 20190130
